FAERS Safety Report 6215708-5 (Version None)
Quarter: 2009Q2

REPORT INFORMATION
  Report Type: 
  Country: None (occurrence: None)
  Receive Date: 20090605
  Receipt Date: 20090529
  Transmission Date: 20091009
  Serious: Yes (Hospitalization, Other)
  Sender: FDA-Public Use
  Company Number: US-BAYER-200922136GPV

PATIENT
  Age: 54 Year
  Sex: Female

DRUGS (9)
  1. AMLODIPINE [Suspect]
     Indication: DRUG USE FOR UNKNOWN INDICATION
  2. NISOLDIPINE [Suspect]
     Indication: DRUG USE FOR UNKNOWN INDICATION
  3. ISRADIPINE [Suspect]
     Indication: DRUG USE FOR UNKNOWN INDICATION
  4. PEPTO-BISMOL [Concomitant]
     Indication: ABDOMINAL PAIN
  5. GAS-X [Concomitant]
     Indication: ABDOMINAL PAIN
  6. ATORVASTATIN CALCIUM [Concomitant]
     Indication: DRUG USE FOR UNKNOWN INDICATION
  7. FUROSEMIDE [Concomitant]
     Indication: DRUG USE FOR UNKNOWN INDICATION
  8. METOPROLOL SUCCINATE [Concomitant]
     Indication: DRUG USE FOR UNKNOWN INDICATION
  9. IRBESARTAN [Concomitant]
     Indication: DRUG USE FOR UNKNOWN INDICATION

REACTIONS (3)
  - ABDOMINAL PAIN [None]
  - NAUSEA [None]
  - SMALL BOWEL ANGIOEDEMA [None]
